FAERS Safety Report 4327737-7 (Version None)
Quarter: 2004Q1

REPORT INFORMATION
  Report Type: 
  Country: None (occurrence: None)
  Receive Date: 20040325
  Receipt Date: 20040301
  Transmission Date: 20041129
  Serious: Yes (Life-Threatening)
  Sender: FDA-Public Use
  Company Number: M2004.0161

PATIENT
  Age: 50 Year
  Sex: Male

DRUGS (4)
  1. METRONIDAZOLE            MANUFACTURER UNK. [Suspect]
     Indication: GINGIVITIS
     Dosage: 200MG TDS
     Route: 062
     Dates: start: 20040121, end: 20040127
  2. AMLODIPINE [Concomitant]
  3. RAMIPRIL [Concomitant]
  4. SIMVASTATIN [Concomitant]

REACTIONS (3)
  - CONDITION AGGRAVATED [None]
  - DEPRESSION [None]
  - SUICIDAL IDEATION [None]
